FAERS Safety Report 9464731 (Version 1)
Quarter: 2013Q3

REPORT INFORMATION
  Report Type: Spontaneous
  Country: US (occurrence: US)
  Receive Date: 20130819
  Receipt Date: 20130819
  Transmission Date: 20140515
  Serious: Yes (Disabling)
  Sender: FDA-Public Use
  Company Number: US-GLAXOSMITHKLINE-A1037484A

PATIENT
  Sex: Female

DRUGS (2)
  1. ADVAIR [Suspect]
     Indication: MULTIPLE ALLERGIES
     Dosage: 1PUFF TWICE PER DAY
     Route: 055
     Dates: start: 201307, end: 201308
  2. CELEXA [Concomitant]

REACTIONS (2)
  - Dysgeusia [Not Recovered/Not Resolved]
  - Ageusia [Not Recovered/Not Resolved]
